FAERS Safety Report 6678287-4 (Version None)
Quarter: 2010Q2

REPORT INFORMATION
  Report Type: 
  Country: None (occurrence: None)
  Receive Date: 20100408
  Receipt Date: 20100204
  Transmission Date: 20101027
  Serious: Yes (Death, Hospitalization)
  Sender: FDA-Public Use
  Company Number: TW-JNJFOC-20081102552

PATIENT
  Age: 70 Year
  Sex: Male

DRUGS (5)
  1. DECITABINE (DECITABINE) LYOPHILIZED POWDER [Suspect]
     Indication: ACUTE MYELOID LEUKAEMIA
     Dosage: SEE IMAGE
     Route: 042
     Dates: start: 20080918, end: 20080922
  2. DECITABINE (DECITABINE) LYOPHILIZED POWDER [Suspect]
     Indication: ACUTE MYELOID LEUKAEMIA
     Dosage: SEE IMAGE
     Route: 042
     Dates: start: 20081016, end: 20081020
  3. DECITABINE (DECITABINE) LYOPHILIZED POWDER [Suspect]
     Indication: ACUTE MYELOID LEUKAEMIA
     Dosage: SEE IMAGE
     Route: 042
     Dates: start: 20080821
  4. MYCOSTATIN (NYSTATIN) UNSPECIFIED [Concomitant]
  5. FARLUTAL (MEDROXYPROGERSTERONE ACETATE) UNSPECIFIED [Concomitant]

REACTIONS (32)
  - BENIGN PROSTATIC HYPERPLASIA [None]
  - BIOPSY BONE MARROW ABNORMAL [None]
  - BLOOD POTASSIUM DECREASED [None]
  - BLOOD PRESSURE SYSTOLIC INCREASED [None]
  - BLOOD SODIUM DECREASED [None]
  - BLOOD UREA INCREASED [None]
  - CAECITIS [None]
  - CLOSTRIDIUM DIFFICILE COLITIS [None]
  - COLITIS [None]
  - COLON CANCER [None]
  - CULTURE URINE POSITIVE [None]
  - DECREASED APPETITE [None]
  - DIARRHOEA HAEMORRHAGIC [None]
  - ENTEROCOCCAL INFECTION [None]
  - GENERAL PHYSICAL HEALTH DETERIORATION [None]
  - HAEMATURIA [None]
  - HAEMOGLOBIN DECREASED [None]
  - HAEMORRHOIDS [None]
  - ILEUS [None]
  - LUNG INFILTRATION [None]
  - LYMPHOCYTE PERCENTAGE INCREASED [None]
  - METASTASES TO LIVER [None]
  - MONOCYTE PERCENTAGE INCREASED [None]
  - NAUSEA [None]
  - NEUTROPENIA [None]
  - ORAL CANDIDIASIS [None]
  - PNEUMONIA [None]
  - SEPTIC SHOCK [None]
  - THROMBOCYTOPENIA [None]
  - URINARY RETENTION [None]
  - VOMITING [None]
  - WHITE BLOOD CELL COUNT DECREASED [None]
